FAERS Safety Report 24328487 (Version 1)
Quarter: 2024Q3

REPORT INFORMATION
  Report Type: Spontaneous
  Country: CN (occurrence: CN)
  Receive Date: 20240917
  Receipt Date: 20240917
  Transmission Date: 20241016
  Serious: Yes (Life-Threatening)
  Sender: FRESENIUS KABI
  Company Number: CN-FreseniusKabi-FK202413843

PATIENT
  Age: 13 Year
  Sex: Male
  Weight: 45 kg

DRUGS (2)
  1. PROPOFOL [Suspect]
     Active Substance: PROPOFOL
     Indication: General anaesthesia
     Dosage: ROUTE OF ADMIN: PUMP INJECTION?FORM OF ADMIN: INJECTION
     Dates: start: 20240614, end: 20240614
  2. REMIFENTANIL HYDROCHLORIDE [Suspect]
     Active Substance: REMIFENTANIL HYDROCHLORIDE
     Indication: General anaesthesia
     Dosage: FOA-POWDER FOR INJECTION
     Route: 042
     Dates: start: 20240614, end: 20240614

REACTIONS (1)
  - Anaphylactic shock [Recovered/Resolved]

NARRATIVE: CASE EVENT DATE: 20240614
